FAERS Safety Report 4889751-2 (Version None)
Quarter: 2006Q1

REPORT INFORMATION
  Report Type: 
  Country: None (occurrence: None)
  Receive Date: 20060124
  Receipt Date: 20060120
  Transmission Date: 20060701
  Serious: Yes (Disabling)
  Sender: FDA-Public Use
  Company Number: CA-MERCK-0601CAN00134

PATIENT
  Age: 58 Year
  Sex: Female

DRUGS (2)
  1. TIMOPTIC-XE [Suspect]
     Indication: GLAUCOMA
     Route: 047
     Dates: start: 20000101, end: 20040101
  2. LATANOPROST [Concomitant]
     Indication: GLAUCOMA
     Route: 065
     Dates: start: 20000101

REACTIONS (1)
  - MULTIPLE CHEMICAL SENSITIVITY [None]
